FAERS Safety Report 19892580 (Version 1)
Quarter: 2021Q3

REPORT INFORMATION
  Report Type: Spontaneous
  Country: GB (occurrence: GB)
  Receive Date: 20210928
  Receipt Date: 20210928
  Transmission Date: 20211014
  Serious: Yes (Other)
  Sender: FDA-Public Use
  Company Number: GB-ORGANON-O2109GBR001904

PATIENT
  Age: 21 Year
  Sex: Female

DRUGS (21)
  1. PENCILLIN [Suspect]
     Active Substance: PENICILLIN
     Indication: TONSILLITIS
     Dosage: 7 DAY COURSE CUT SHORT DUE TO ALLERGIC REACTION
     Route: 048
     Dates: start: 19991222, end: 19991224
  2. PROTOPIC [Suspect]
     Active Substance: TACROLIMUS
     Indication: ECZEMA
     Dosage: TO THE FACE AND NECK
     Route: 061
     Dates: start: 20110121, end: 20140224
  3. FUCIDIN (FUSIDIC ACID) [Concomitant]
     Active Substance: FUSIDIC ACID
     Dosage: UNK
  4. EUMOVATE [Suspect]
     Active Substance: CLOBETASONE BUTYRATE
     Indication: ECZEMA
     Dosage: UNK UNK, AS NECESSARY
     Route: 061
     Dates: start: 20110114, end: 20130412
  5. HERBAL [Concomitant]
     Active Substance: HERBALS
     Dosage: BACH RESCUE REMEDY SOOTHERS
  6. CETIRIZINE HYDROCHLORIDE. [Concomitant]
     Active Substance: CETIRIZINE HYDROCHLORIDE
     Dosage: UNK
  7. ELOCON [Suspect]
     Active Substance: MOMETASONE FUROATE
     Indication: ECZEMA
     Dosage: UNK UNK, AS NECESSARY
     Route: 061
     Dates: start: 20110114, end: 20120417
  8. CLOBETASOL PROPIONATE. [Suspect]
     Active Substance: CLOBETASOL PROPIONATE
     Indication: DERMATITIS ATOPIC
     Dosage: TOPICALLY SOMETIMES ONCE A DAY FOR LONGER THAN 7 DAYS
     Route: 061
     Dates: start: 20090914, end: 20140224
  9. ACICLOVIR [Concomitant]
     Active Substance: ACYCLOVIR
     Dosage: UNK
  10. KENALOG [Suspect]
     Active Substance: TRIAMCINOLONE ACETONIDE
     Dosage: UNK
     Dates: start: 20130514
  11. ADRENALIN (EPINEPHRINE) [Concomitant]
     Active Substance: EPINEPHRINE
     Dosage: UNK
  12. IBROFEN [Concomitant]
     Dosage: UNK
  13. PREDNISOLONE. [Suspect]
     Active Substance: PREDNISOLONE
     Indication: ECZEMA
     Dosage: 3?10 DAY 5MG ON 4 OR 5 OCCASIONS IN A 2 YEAR PERIOD
     Route: 048
     Dates: start: 20110121, end: 20130314
  14. BECONASE AQ [Concomitant]
     Active Substance: BECLOMETHASONE DIPROPIONATE MONOHYDRATE
     Dosage: UNK
  15. SALBUTAMOL SULFATE [Concomitant]
     Active Substance: ALBUTEROL SULFATE
     Dosage: UNK
  16. BETNOVATE [Suspect]
     Active Substance: BETAMETHASONE
     Indication: ECZEMA
     Dosage: TOPICALLY TO THE BODY SOMETIMES 1?2 TIMES A DAY
     Route: 061
     Dates: start: 20000828, end: 20080914
  17. DERMOVATE [Suspect]
     Active Substance: CLOBETASOL
     Indication: DERMATITIS ATOPIC
     Dosage: UNK UNK, AS NECESSARY
     Route: 061
     Dates: start: 20090914, end: 20140224
  18. HYDROCORTISONE. [Suspect]
     Active Substance: HYDROCORTISONE
     Dosage: TO FACE AND BODY
     Dates: start: 19890531, end: 20170616
  19. FEXOFENADINE HYDROCHLORIDE. [Concomitant]
     Active Substance: FEXOFENADINE HYDROCHLORIDE
     Dosage: UNK
  20. PARACETAMOL [Concomitant]
     Active Substance: ACETAMINOPHEN
     Dosage: UNK
  21. SUDAFED NASAL SPRAY [Concomitant]
     Dosage: UNK

REACTIONS (11)
  - Pyrexia [Not Recovered/Not Resolved]
  - Drug withdrawal syndrome [Unknown]
  - Skin infection [Not Recovered/Not Resolved]
  - Pain of skin [Not Recovered/Not Resolved]
  - Skin exfoliation [Not Recovered/Not Resolved]
  - Skin weeping [Not Recovered/Not Resolved]
  - Hypersensitivity [Unknown]
  - Eczema herpeticum [Unknown]
  - Hyperhidrosis [Unknown]
  - Skin warm [Unknown]
  - Skin burning sensation [Recovered/Resolved]

NARRATIVE: CASE EVENT DATE: 20080419
